FAERS Safety Report 6177680-6 (Version None)
Quarter: 2009Q2

REPORT INFORMATION
  Report Type: 
  Country: None (occurrence: None)
  Receive Date: 20090504
  Receipt Date: 20090422
  Transmission Date: 20091009
  Serious: Yes (Other)
  Sender: FDA-Public Use
  Company Number: PHEH2009US04087

PATIENT
  Sex: Female

DRUGS (1)
  1. TEKTURNA [Suspect]
     Dosage: 150 MG, UNK
     Route: 048

REACTIONS (1)
  - THROAT TIGHTNESS [None]
